FAERS Safety Report 5973422-5 (Version None)
Quarter: 2008Q4

REPORT INFORMATION
  Report Type: 
  Country: None (occurrence: None)
  Receive Date: 20081121
  Receipt Date: 20081113
  Transmission Date: 20090506
  Serious: Yes (Death, Hospitalization)
  Sender: FDA-Public Use
  Company Number: PAR_02426_2008

PATIENT
  Sex: Female
  Weight: 70.3075 kg

DRUGS (9)
  1. MEGESTROL ACETATE [Suspect]
     Indication: DECREASED APPETITE
     Dosage: (800 MG QD ORAL)
     Route: 048
     Dates: start: 20080804, end: 20080829
  2. POTASSIUM CHLORIDE [Concomitant]
  3. FERROUS SULFATE TAB [Concomitant]
  4. COLACE [Concomitant]
  5. LEVOXYL [Concomitant]
  6. PACERONE [Concomitant]
  7. KEFLEX /00145501/ [Concomitant]
  8. PROTONIX /01263201/ [Concomitant]
  9. DARVOCET /00220901/ [Concomitant]

REACTIONS (5)
  - CARDIO-RESPIRATORY ARREST [None]
  - GASTROINTESTINAL NECROSIS [None]
  - INTESTINAL INFARCTION [None]
  - SEPTIC SHOCK [None]
  - WHITE BLOOD CELL COUNT INCREASED [None]
